FAERS Safety Report 14536730 (Version 1)
Quarter: 2018Q1

REPORT INFORMATION
  Report Type: Spontaneous
  Country: US (occurrence: US)
  Receive Date: 20180215
  Receipt Date: 20180215
  Transmission Date: 20180509
  Serious: Yes (Hospitalization)
  Sender: FDA-Public Use
  Company Number: None

PATIENT
  Age: 59 Year
  Sex: Female
  Weight: 72.4 kg

DRUGS (13)
  1. PLAVIX [Concomitant]
     Active Substance: CLOPIDOGREL BISULFATE
  2. COLLAGENASE SANTYL [Concomitant]
     Active Substance: COLLAGENASE CLOSTRIDIUM HISTOLYTICUM
  3. DIAVIT [Concomitant]
  4. ATARAX [Concomitant]
     Active Substance: HYDROXYZINE HYDROCHLORIDE
  5. DOXEPIN [Concomitant]
     Active Substance: DOXEPIN
  6. FE [Concomitant]
     Active Substance: IRON
  7. VITAMIN B COMPLEX [Concomitant]
     Active Substance: CYANOCOBALAMIN\DEXPANTHENOL\NIACINAMIDE\PYRIDOXINE HYDROCHLORIDE\RIBOFLAVIN 5^-PHOSPHATE SODIUM\THIAMINE HYDROCHLORIDE\VITAMIN B COMPLEX
  8. APAP [Concomitant]
     Active Substance: ACETAMINOPHEN
  9. LIDOCAINE. [Concomitant]
     Active Substance: LIDOCAINE
  10. KLONOPIN [Concomitant]
     Active Substance: CLONAZEPAM
  11. BACLOFEN. [Suspect]
     Active Substance: BACLOFEN
     Indication: PAIN
     Dosage: RECENT START
     Route: 048
  12. TOPROL XL [Concomitant]
     Active Substance: METOPROLOL SUCCINATE
  13. DOXYCYCLINE. [Concomitant]
     Active Substance: DOXYCYCLINE

REACTIONS (5)
  - Metabolic encephalopathy [None]
  - Dialysis [None]
  - Vomiting [None]
  - Myoclonus [None]
  - Nausea [None]

NARRATIVE: CASE EVENT DATE: 20170604
